FAERS Safety Report 11988002 (Version 1)
Quarter: 2016Q1

REPORT INFORMATION
  Report Type: Spontaneous
  Country: US (occurrence: US)
  Receive Date: 20160202
  Receipt Date: 20160202
  Transmission Date: 20160526
  Serious: No
  Sender: FDA-Public Use
  Company Number: US-BAYER-2016-010933

PATIENT
  Age: 60 Year
  Sex: Female

DRUGS (17)
  1. NEXIUM [Concomitant]
     Active Substance: ESOMEPRAZOLE MAGNESIUM
  2. RITALIN LA [Concomitant]
     Active Substance: METHYLPHENIDATE HYDROCHLORIDE
  3. PHENYTOIN SODIUM EXTENDED [Concomitant]
     Active Substance: PHENYTOIN SODIUM
  4. PRAMIPEXOLE DIHYDROCHLORIDE. [Concomitant]
     Active Substance: PRAMIPEXOLE DIHYDROCHLORIDE
  5. LIDOCAINE/PRILOCAINE [LIDOCAINE,PRILOCAINE] [Concomitant]
  6. VANCOMYCIN [Concomitant]
     Active Substance: VANCOMYCIN
     Dosage: 500 MG, UNK
     Route: 042
  7. TROSPIUM CHLORIDE. [Concomitant]
     Active Substance: TROSPIUM CHLORIDE
  8. METHYLPHENIDATE HYDROCHLORIDE. [Concomitant]
     Active Substance: METHYLPHENIDATE HYDROCHLORIDE
  9. BETASERON [Suspect]
     Active Substance: INTERFERON BETA-1B
     Indication: COMPLEX PARTIAL SEIZURES
     Dosage: 0.25 MG, QOD
     Route: 058
     Dates: start: 20130109
  10. BETASERON [Suspect]
     Active Substance: INTERFERON BETA-1B
     Indication: EPILEPSY
  11. DICLOFENAC SODIUM. [Concomitant]
     Active Substance: DICLOFENAC SODIUM
  12. METHYLEPHEDRINE HYDROCHLORIDE-DL [Concomitant]
  13. RANITIDIN [Concomitant]
     Active Substance: RANITIDINE HYDROCHLORIDE
  14. VENLAFAXINE HYDROCHLORIDE. [Concomitant]
     Active Substance: VENLAFAXINE HYDROCHLORIDE
  15. METHENAMINE HIPPURATE [METHENAMINE] [Concomitant]
  16. BACLOFEN. [Concomitant]
     Active Substance: BACLOFEN
  17. ANASTROZOLE. [Concomitant]
     Active Substance: ANASTROZOLE

REACTIONS (3)
  - Injection site pruritus [None]
  - Product use issue [None]
  - Injection site erythema [None]

NARRATIVE: CASE EVENT DATE: 20151101
